FAERS Safety Report 9029065 (Version 1)
Quarter: 2013Q1

REPORT INFORMATION
  Report Type: Spontaneous
  Country: US (occurrence: US)
  Receive Date: 20130122
  Receipt Date: 20130122
  Transmission Date: 20140127
  Serious: No
  Sender: FDA-Public Use
  Company Number: US-ASTRAZENECA-2013SE01968

PATIENT
  Age: 59 Year
  Sex: Male
  Weight: 124.7 kg

DRUGS (5)
  1. NEXIUM [Suspect]
     Indication: GASTROOESOPHAGEAL REFLUX DISEASE
  2. VITAMINS [Concomitant]
  3. VITAMIN E [Concomitant]
  4. CENTRUM [Concomitant]
  5. VITAMIN K [Concomitant]

REACTIONS (3)
  - Chest discomfort [Unknown]
  - Weight increased [Unknown]
  - Intentional drug misuse [Unknown]
